FAERS Safety Report 17288464 (Version 2)
Quarter: 2020Q1

REPORT INFORMATION
  Report Type: Spontaneous
  Country: RO (occurrence: RO)
  Receive Date: 20200120
  Receipt Date: 20200221
  Transmission Date: 20200409
  Serious: Yes (Hospitalization)
  Sender: FDA-Public Use
  Company Number: RO-JNJFOC-20191232567

PATIENT
  Age: 38 Year
  Sex: Male

DRUGS (3)
  1. DEPAKINE                           /00228501/ [Concomitant]
     Active Substance: VALPROIC ACID
     Indication: PRODUCT USED FOR UNKNOWN INDICATION
  2. RISPOLEPT CONSTA [Suspect]
     Active Substance: RISPERIDONE
     Route: 065
     Dates: start: 20200123
  3. RISPOLEPT CONSTA [Suspect]
     Active Substance: RISPERIDONE
     Indication: SCHIZOPHRENIA
     Route: 065

REACTIONS (11)
  - Jaundice [Recovered/Resolved]
  - Delusion [Not Recovered/Not Resolved]
  - Peripheral coldness [Unknown]
  - Dizziness [Unknown]
  - Dyspnoea [Unknown]
  - Hot flush [Unknown]
  - Blood cholesterol increased [Unknown]
  - Transaminases increased [Unknown]
  - Hallucination, visual [Not Recovered/Not Resolved]
  - Vomiting [Unknown]
  - Hospitalisation [Unknown]

NARRATIVE: CASE EVENT DATE: 201912
